FAERS Safety Report 21739176 (Version 1)
Quarter: 2022Q4

REPORT INFORMATION
  Report Type: Spontaneous
  Country: SE (occurrence: SE)
  Receive Date: 20221216
  Receipt Date: 20221216
  Transmission Date: 20230113
  Serious: Yes (Hospitalization, Other)
  Sender: FDA-Public Use
  Company Number: SE-Indoco-000367

PATIENT
  Age: 69 Year
  Sex: Male

DRUGS (1)
  1. OLANZAPINE [Suspect]
     Active Substance: OLANZAPINE
     Indication: Delirium
     Dosage: RECEIVED 4 DOSES

REACTIONS (4)
  - Coma [Recovered/Resolved]
  - Hypotension [Recovered/Resolved]
  - Miosis [Recovered/Resolved]
  - Toxicity to various agents [Unknown]
